FAERS Safety Report 15438331 (Version 1)
Quarter: 2018Q3

REPORT INFORMATION
  Report Type: Spontaneous
  Country: US (occurrence: US)
  Receive Date: 20180928
  Receipt Date: 20180928
  Transmission Date: 20181010
  Serious: No
  Sender: FDA-Public Use
  Company Number: US-BION-006897

PATIENT
  Age: 55 Year
  Sex: Female
  Weight: 55.79 kg

DRUGS (1)
  1. IMODIUM A?D [Suspect]
     Active Substance: LOPERAMIDE HYDROCHLORIDE
     Indication: DIARRHOEA
     Dosage: 2 SOFT GELS ON THE ONSET AND 1 ADDITIONAL ONE DURING THE DAY
     Route: 048

REACTIONS (4)
  - Rectal tenesmus [Recovered/Resolved]
  - Incorrect dose administered [Not Recovered/Not Resolved]
  - Condition aggravated [Unknown]
  - Drug ineffective [Unknown]
